FAERS Safety Report 21141707 (Version 3)
Quarter: 2023Q2

REPORT INFORMATION
  Report Type: Report from Study
  Country: LU (occurrence: LU)
  Receive Date: 20220728
  Receipt Date: 20230601
  Transmission Date: 20230721
  Serious: Yes (Hospitalization, Other)
  Sender: FDA-Public Use
  Company Number: LU-NOVARTISPH-NVSC2022LU151599

PATIENT
  Age: 19 Month
  Sex: Female
  Weight: 4.5 kg

DRUGS (6)
  1. TRAMETINIB [Suspect]
     Active Substance: TRAMETINIB
     Indication: Noonan syndrome
     Dosage: 120 UG, QD (POWDER FOR ORAL SOLUTION)
     Route: 048
     Dates: start: 20220222
  2. TRAMETINIB [Suspect]
     Active Substance: TRAMETINIB
     Indication: Lymphatic malformation
     Dosage: 120 UG, TID
     Route: 065
     Dates: start: 20220505
  3. TRAMETINIB [Suspect]
     Active Substance: TRAMETINIB
     Indication: Chylothorax
     Dosage: 120 UG, TID
     Route: 065
     Dates: start: 20220507, end: 20220512
  4. SODIUM BICARBONATE [Concomitant]
     Active Substance: SODIUM BICARBONATE
     Indication: Supplementation therapy
     Dosage: 500 MG, TID
     Route: 048
  5. LEVOTHYROXINE SODIUM [Concomitant]
     Active Substance: LEVOTHYROXINE SODIUM
     Indication: Hypothyroidism
     Dosage: 15 UG, QD
     Route: 048
  6. INTRALIPID [Concomitant]
     Active Substance: EGG PHOSPHOLIPIDS\GLYCERIN\SOYBEAN OIL
     Indication: Product used for unknown indication
     Dosage: UNK (1X/15 DAYS)
     Route: 065

REACTIONS (12)
  - Respiratory distress [Unknown]
  - Pleural effusion [Unknown]
  - Leukopenia [Unknown]
  - Neutropenia [Unknown]
  - Lymphopenia [Unknown]
  - Transaminases increased [Unknown]
  - Overdose [Unknown]
  - Candida sepsis [Unknown]
  - Catheter site infection [Unknown]
  - Hyponatraemia [Unknown]
  - Feeling abnormal [Unknown]
  - Pyrexia [Unknown]

NARRATIVE: CASE EVENT DATE: 20220101
